FAERS Safety Report 7881318-7 (Version None)
Quarter: 2011Q4

REPORT INFORMATION
  Report Type: 
  Country: None (occurrence: None)
  Receive Date: 20111101
  Receipt Date: 20110525
  Transmission Date: 20120403
  Serious: Yes (Other)
  Sender: FDA-Public Use
  Company Number: US-AMGEN-USASP2011023560

PATIENT
  Age: 69 Year
  Sex: Male
  Weight: 91.61 kg

DRUGS (1)
  1. ENBREL [Suspect]
     Indication: RHEUMATOID ARTHRITIS
     Dosage: 50 MG, QWK
     Route: 058
     Dates: start: 19991202, end: 20091206

REACTIONS (1)
  - NEUROENDOCRINE CARCINOMA OF THE SKIN [None]
